FAERS Safety Report 5585774-9 (Version None)
Quarter: 2008Q1

REPORT INFORMATION
  Report Type: 
  Country: None (occurrence: None)
  Receive Date: 20080109
  Receipt Date: 20071217
  Transmission Date: 20080703
  Serious: Yes (Other)
  Sender: FDA-Public Use
  Company Number: BR-BRISTOL-MYERS SQUIBB COMPANY-14032601

PATIENT
  Age: 72 Year
  Sex: Male

DRUGS (5)
  1. CARBIDOPA + LEVODOPA [Suspect]
     Indication: PARKINSON'S DISEASE
     Dosage: 1 DOSAGE FORM = 1 TABLET
     Route: 048
     Dates: start: 20071120, end: 20071213
  2. FINASTERIDE [Concomitant]
     Dates: start: 20070620
  3. MINERAL TAB [Concomitant]
  4. VITAMIN [Concomitant]
  5. DIPYRONE+ORPHENADRINE CITRATE+CAFFEINE [Concomitant]

REACTIONS (3)
  - APRAXIA [None]
  - GAIT DISTURBANCE [None]
  - URINARY RETENTION [None]
